FAERS Safety Report 19056517 (Version 1)
Quarter: 2021Q1

REPORT INFORMATION
  Report Type: Spontaneous
  Country: US (occurrence: US)
  Receive Date: 20210325
  Receipt Date: 20210325
  Transmission Date: 20210420
  Serious: Yes (Hospitalization)
  Sender: FDA-Public Use
  Company Number: None

PATIENT
  Age: 71 Year
  Sex: Male
  Weight: 87.3 kg

DRUGS (1)
  1. SORAFENIB (BAY 200MG 43?9006; (NEXAVAR) [Suspect]
     Active Substance: SORAFENIB
     Dates: end: 20210302

REACTIONS (3)
  - Blood creatinine increased [None]
  - Hydronephrosis [None]
  - Hepatorenal syndrome [None]

NARRATIVE: CASE EVENT DATE: 20210308
